FAERS Safety Report 20654351 (Version 1)
Quarter: 2022Q1

REPORT INFORMATION
  Report Type: Spontaneous
  Country: HK (occurrence: HK)
  Receive Date: 20220330
  Receipt Date: 20220330
  Transmission Date: 20220424
  Serious: Yes (Other)
  Sender: FDA-Public Use
  Company Number: HK-BAYER-2022A046193

PATIENT
  Sex: Male

DRUGS (1)
  1. XOFIGO [Suspect]
     Active Substance: RADIUM RA-223 DICHLORIDE
     Dosage: UNK
     Dates: end: 20220321

REACTIONS (1)
  - Malignant neoplasm progression [None]
